FAERS Safety Report 10044940 (Version 1)
Quarter: 2014Q1

REPORT INFORMATION
  Report Type: Spontaneous
  Country: US (occurrence: None)
  Receive Date: 20140306
  Receipt Date: 20140306
  Transmission Date: 20141002
  Serious: Yes (Other)
  Sender: FDA-Public Use
  Company Number: 163-21880-13053123

PATIENT
  Age: 72 Year
  Sex: Male
  Weight: 112.95 kg

DRUGS (8)
  1. REVLIMID [Suspect]
     Indication: PLASMA CELL MYELOMA
     Route: 048
     Dates: start: 20130424
  2. BLOOD THINNER (ANTITHROMBOTIC AGENTS) [Concomitant]
  3. LYRICA (PREGABALIN) [Concomitant]
  4. PAIN MEDICATION (METOPROLOL TARTRATE) [Concomitant]
  5. LOPRESSOR (METOPROLOL TARTRATE) [Concomitant]
  6. LASIX (FUROSEMIDE) [Concomitant]
  7. BACTRIM (BACTRIM) (SULFAMETHOXAZOLE, TRIMETHOPRIM) [Concomitant]
  8. DEXAMETHASONE (DEXAMETHASONE) [Concomitant]

REACTIONS (1)
  - Thrombosis [None]
